FAERS Safety Report 9572028 (Version 2)
Quarter: 2013Q4

REPORT INFORMATION
  Report Type: Spontaneous
  Country: US (occurrence: US)
  Receive Date: 20131001
  Receipt Date: 20131028
  Transmission Date: 20140711
  Serious: No
  Sender: FDA-Public Use
  Company Number: US-B.I. PHARMACEUTICALS,INC./RIDGEFIELD-2013-BI-29800BP

PATIENT
  Sex: Female
  Weight: 47 kg

DRUGS (6)
  1. COMBIVENT [Suspect]
     Indication: CHRONIC OBSTRUCTIVE PULMONARY DISEASE
     Dosage: STRENGTH: 20 MCG / 100 MCG( 1 PUFF); DAILY DOSE: 80 MCG / 400 MCG
     Route: 055
     Dates: start: 201303
  2. IMDUR [Concomitant]
     Indication: HYPERTENSION
     Dosage: 60 MG
     Route: 048
  3. NORVASC [Concomitant]
     Indication: HYPERTENSION
     Dosage: 2.5 MG
     Route: 048
  4. SYMBICORT [Concomitant]
     Indication: CHRONIC OBSTRUCTIVE PULMONARY DISEASE
     Dosage: FORMULATION,INHALATION AEROSOL;STRENGTH: 1 INHALATION; DAILY DOSE: 2 INHALATIONS
     Route: 055
  5. ASPIRIN [Concomitant]
     Indication: MYOCARDIAL INFARCTION
     Dosage: 81 MG
     Route: 048
  6. PREMARIN [Concomitant]
     Indication: HYSTERECTOMY
     Dosage: 0.625 MG
     Route: 048

REACTIONS (2)
  - Dyspnoea [Not Recovered/Not Resolved]
  - Joint swelling [Recovered/Resolved]
